FAERS Safety Report 17228603 (Version 1)
Quarter: 2020Q1

REPORT INFORMATION
  Report Type: Spontaneous
  Country: CN (occurrence: CN)
  Receive Date: 20200103
  Receipt Date: 20200103
  Transmission Date: 20200409
  Serious: Yes (Life-Threatening, Other)
  Sender: FDA-Public Use
  Company Number: CN-BAYER-2019-236353

PATIENT
  Age: 42 Year
  Sex: Male
  Weight: 60 kg

DRUGS (1)
  1. IOPROMIDE. [Suspect]
     Active Substance: IOPROMIDE
     Indication: COMPUTERISED TOMOGRAM ABDOMEN
     Dosage: 100 ML, ONCE
     Route: 042
     Dates: start: 20191219, end: 20191219

REACTIONS (10)
  - Anaphylactic shock [Recovering/Resolving]
  - Empyema [None]
  - Hypoaesthesia [Recovering/Resolving]
  - Amaurosis [Recovering/Resolving]
  - Asthenia [Recovering/Resolving]
  - Hyperhidrosis [Recovering/Resolving]
  - Hypokalaemia [None]
  - Syncope [Recovering/Resolving]
  - Tremor [Recovering/Resolving]
  - Dyspnoea [Recovering/Resolving]

NARRATIVE: CASE EVENT DATE: 20191219
